FAERS Safety Report 15940837 (Version 1)
Quarter: 2019Q1

REPORT INFORMATION
  Report Type: Spontaneous
  Country: GT (occurrence: GT)
  Receive Date: 20190208
  Receipt Date: 20190208
  Transmission Date: 20190417
  Serious: Yes (Death, Hospitalization)
  Sender: FDA-Public Use
  Company Number: GT-ELEFSEE PHARMACEUTICALS INTERNATIONAL-GT-2019WTD000007

PATIENT
  Age: 31 Year
  Sex: Female

DRUGS (2)
  1. BUPIVACAINE. [Suspect]
     Active Substance: BUPIVACAINE
     Indication: SPINAL ANAESTHESIA
     Dosage: 10 MG, UNK
  2. FENTANYL. [Suspect]
     Active Substance: FENTANYL
     Indication: SPINAL ANAESTHESIA
     Dosage: 25 ?G, UNK

REACTIONS (2)
  - Kounis syndrome [Unknown]
  - Pneumonia [Fatal]
